FAERS Safety Report 8817654 (Version 2)
Quarter: 2012Q4

REPORT INFORMATION
  Report Type: 
  Country: US (occurrence: US)
  Receive Date: 20121001
  Receipt Date: 20121010
  Transmission Date: 20130627
  Serious: Yes (Death, Other)
  Sender: FDA-Public Use
  Company Number: PHEH2012US019043

PATIENT
  Age: 82 Year
  Sex: Male

DRUGS (16)
  1. NEORAL [Suspect]
     Indication: HEART TRANSPLANT
     Dosage: 1 DF, BID
     Route: 048
     Dates: start: 20090311
  2. ADVAIR DISKUS [Concomitant]
     Dates: start: 20080123
  3. ALBUTEROL [Concomitant]
     Dates: start: 20080123
  4. ASPIRIN [Concomitant]
     Dosage: 1 DF daily
     Route: 048
  5. FLUOXETINE [Concomitant]
     Dosage: 1 DF daily
     Route: 048
  6. IMURAN [Concomitant]
     Dosage: 1 DF,daily
     Route: 048
     Dates: start: 20080123
  7. K-DUR [Concomitant]
     Dosage: 2 DF,daily
     Dates: start: 20090311
  8. OXYCODONE W/PARACETAMOL [Concomitant]
     Route: 048
     Dates: start: 20101215
  9. PLAVIX [Concomitant]
     Dosage: 1 DF,daily
  10. RANITIDINE [Concomitant]
     Dosage: 1 DF, daily at bedtime
     Route: 048
     Dates: start: 20080123
  11. SINGULAIR [Concomitant]
     Dosage: 1 DF, QD
     Route: 048
     Dates: start: 20090804
  12. SMZ-TMP [Concomitant]
     Dosage: 1 DF, on Mon day, wed day, friday
     Route: 048
  13. TEGRETOL [Concomitant]
     Dosage: 1 DF, daily
  14. VITAMIN B12 [Concomitant]
     Dosage: 1 DF, daily
     Route: 048
  15. VITAMINE D3 [Concomitant]
     Dosage: 1 DF, daily
     Route: 048
  16. ZELTA [Concomitant]
     Dosage: 1 DF, daily
     Route: 048
     Dates: start: 20080123

REACTIONS (2)
  - Death [Fatal]
  - Dementia Alzheimer^s type [Unknown]
